FAERS Safety Report 8209848-9 (Version None)
Quarter: 2012Q1

REPORT INFORMATION
  Report Type: 
  Country: None (occurrence: None)
  Receive Date: 20120314
  Receipt Date: 20120305
  Transmission Date: 20120608
  Serious: Yes (Other)
  Sender: FDA-Public Use
  Company Number: US-ASTRAZENECA-2011SE61236

PATIENT
  Age: 66 Year
  Sex: Female

DRUGS (2)
  1. CRESTOR [Suspect]
     Route: 048
  2. ARIMIDEX [Suspect]
     Route: 048

REACTIONS (4)
  - BREAST CANCER FEMALE [None]
  - NEOPLASM MALIGNANT [None]
  - RADIATION INJURY [None]
  - OVARIAN MASS [None]
